FAERS Safety Report 5105979-0 (Version None)
Quarter: 2006Q3

REPORT INFORMATION
  Report Type: 
  Country: None (occurrence: None)
  Receive Date: 20060915
  Receipt Date: 20060905
  Transmission Date: 20061208
  Serious: Yes (Disabling, Other)
  Sender: FDA-Public Use
  Company Number: US-MERCK-0609USA00621

PATIENT
  Age: 8 Year
  Sex: Female

DRUGS (3)
  1. SINGULAIR [Suspect]
     Indication: ASTHMA
     Route: 048
     Dates: start: 20010901
  2. ALBUTEROL [Concomitant]
     Route: 065
  3. ADVAIR DISKUS 100/50 [Concomitant]
     Route: 065

REACTIONS (2)
  - ABNORMAL BEHAVIOUR [None]
  - MENTAL DISORDER [None]
